FAERS Safety Report 8028322-6 (Version None)
Quarter: 2012Q1

REPORT INFORMATION
  Report Type: 
  Country: None (occurrence: None)
  Receive Date: 20120106
  Receipt Date: 20111226
  Transmission Date: 20120608
  Serious: Yes (Death, Hospitalization, Other)
  Sender: FDA-Public Use
  Company Number: JP-ROCHE-641330

PATIENT
  Sex: Female
  Weight: 50 kg

DRUGS (14)
  1. PREDNISOLONE [Concomitant]
     Route: 048
  2. STROMECTOL [Concomitant]
     Dates: start: 20080701
  3. PREDNISOLONE [Concomitant]
     Route: 048
  4. MUCODYNE [Concomitant]
     Route: 048
  5. ACTEMRA [Suspect]
     Indication: RHEUMATOID ARTHRITIS
     Route: 041
     Dates: start: 20090123, end: 20090123
  6. PREDNISOLONE [Concomitant]
  7. ALENDRONATE SODIUM [Concomitant]
     Route: 048
  8. ACTEMRA [Suspect]
     Route: 041
     Dates: start: 20090324, end: 20090324
  9. BUCILLAMINE [Suspect]
     Indication: RHEUMATOID ARTHRITIS
     Route: 048
  10. PROGRAF [Concomitant]
     Route: 048
  11. CIPROFLOXACIN HCL [Concomitant]
     Dates: end: 20090428
  12. ACTEMRA [Suspect]
     Route: 041
     Dates: start: 20090224, end: 20090224
  13. RABEPRAZOLE SODIUM [Concomitant]
     Route: 048
  14. SULFAMETHOXAZOLE AND TRIMETHOPRIM [Concomitant]

REACTIONS (20)
  - TYPE 2 DIABETES MELLITUS [None]
  - RHEUMATOID VASCULITIS [None]
  - CONDITION AGGRAVATED [None]
  - BLOOD CREATININE INCREASED [None]
  - BLOOD ALBUMIN DECREASED [None]
  - INTERSTITIAL LUNG DISEASE [None]
  - PNEUMONIA PNEUMOCOCCAL [None]
  - INCORRECT DOSE ADMINISTERED [None]
  - RED BLOOD CELL COUNT DECREASED [None]
  - BLOOD SODIUM DECREASED [None]
  - BLOOD CHLORIDE DECREASED [None]
  - COMPLEMENT FACTOR INCREASED [None]
  - BLOOD UREA INCREASED [None]
  - RESPIRATORY ACIDOSIS [None]
  - PROTEIN TOTAL DECREASED [None]
  - BLOOD LACTATE DEHYDROGENASE INCREASED [None]
  - LEFT VENTRICULAR HYPERTROPHY [None]
  - ALBUMIN GLOBULIN RATIO DECREASED [None]
  - BLOOD POTASSIUM INCREASED [None]
  - OCULAR ICTERUS [None]
